FAERS Safety Report 4717266-0 (Version None)
Quarter: 2005Q3

REPORT INFORMATION
  Report Type: 
  Country: None (occurrence: None)
  Receive Date: 20050715
  Receipt Date: 20050704
  Transmission Date: 20060218
  Serious: Yes (Life-Threatening)
  Sender: FDA-Public Use
  Company Number: OMPQ-NO-0507S-1010

PATIENT
  Age: 20 Year
  Sex: Female

DRUGS (3)
  1. OMNIPAQUE 300 [Suspect]
     Indication: APPENDICITIS
     Dosage: 100 ML, SINGLE DOSE, I.V.
     Route: 042
     Dates: start: 20050625, end: 20050625
  2. LEVOFLOXACIN [Concomitant]
  3. STREPTOCOCCUS FAECALIS (BIOFERMIN R) [Concomitant]

REACTIONS (4)
  - BLOOD BILIRUBIN INCREASED [None]
  - BLOOD LACTATE DEHYDROGENASE INCREASED [None]
  - HAEMOLYSIS [None]
  - PLATELET COUNT DECREASED [None]
